FAERS Safety Report 15275067 (Version 2)
Quarter: 2018Q3

REPORT INFORMATION
  Report Type: Spontaneous
  Country: US (occurrence: US)
  Receive Date: 20180814
  Receipt Date: 20180903
  Transmission Date: 20181010
  Serious: No
  Sender: FDA-Public Use
  Company Number: US-PFIZER INC-2018262056

PATIENT
  Age: 71 Year
  Sex: Female

DRUGS (2)
  1. LYRICA [Suspect]
     Active Substance: PREGABALIN
     Dosage: 50 MG, 3X/DAY, (DISPENSE/SUPPLY: 90 CAPS)
     Route: 048
     Dates: start: 20180625
  2. LYRICA [Suspect]
     Active Substance: PREGABALIN
     Indication: TRIGEMINAL NEURALGIA
     Dosage: 50 MG, 3X/DAY
     Route: 048
     Dates: start: 20170606

REACTIONS (2)
  - Amnesia [Unknown]
  - Joint swelling [Unknown]

NARRATIVE: CASE EVENT DATE: 20180314
